FAERS Safety Report 22720016 (Version 2)
Quarter: 2024Q3

REPORT INFORMATION
  Report Type: Spontaneous
  Country: US (occurrence: US)
  Receive Date: 20230718
  Receipt Date: 20240805
  Transmission Date: 20241017
  Serious: No
  Sender: EVOKE PHARMA
  Company Number: US-EVOKE PHARMA, INC.-2023EVO000082

PATIENT

DRUGS (1)
  1. GIMOTI [Suspect]
     Active Substance: METOCLOPRAMIDE HYDROCHLORIDE
     Indication: Dysphagia
     Dosage: 15 MILLIGRAM, 1 SPRAY IN ONE NOSTRIL THREE TIMES A DAY 30 MINUTES BEFORE MEALS
     Route: 045
     Dates: start: 2023, end: 2023

REACTIONS (2)
  - Off label use [Unknown]
  - Dysgeusia [Unknown]
